FAERS Safety Report 12788566 (Version 1)
Quarter: 2016Q3

REPORT INFORMATION
  Report Type: Spontaneous
  Country: US (occurrence: US)
  Receive Date: 20160928
  Receipt Date: 20160928
  Transmission Date: 20161109
  Serious: No
  Sender: FDA-Public Use
  Company Number: US-SHIRE-US201611067

PATIENT
  Age: 35 Year
  Sex: Female
  Weight: 74.83 kg

DRUGS (33)
  1. VENTOLIN [Concomitant]
     Active Substance: ALBUTEROL SULFATE
     Indication: WHEEZING
  2. RESTASIS [Concomitant]
     Active Substance: CYCLOSPORINE
     Indication: PRODUCT USED FOR UNKNOWN INDICATION
     Dosage: 1 GTT, 2X/DAY:BID
     Route: 047
  3. ALLEGRA [Concomitant]
     Active Substance: FEXOFENADINE HYDROCHLORIDE
     Indication: PRODUCT USED FOR UNKNOWN INDICATION
     Dosage: 180 MG, 1X/DAY:QD
     Route: 048
  4. SINGULAIR [Concomitant]
     Active Substance: MONTELUKAST SODIUM
     Indication: ALLERGY PROPHYLAXIS
     Dosage: 10 MG, OTHER (DAY BEFORE ALLERGY SHOT AND DAY OF)
     Route: 065
     Dates: start: 20151228
  5. DESYREL [Concomitant]
     Active Substance: TRAZODONE HYDROCHLORIDE
     Indication: PRODUCT USED FOR UNKNOWN INDICATION
     Dosage: 50 MG, AS REQ^D (AT BEDTIME)
     Route: 065
     Dates: start: 20151111
  6. KENALOG [Concomitant]
     Active Substance: TRIAMCINOLONE ACETONIDE
     Indication: PRODUCT USED FOR UNKNOWN INDICATION
     Dosage: 0.1 %, 2X/DAY:BID
     Route: 061
     Dates: start: 20160524
  7. PROAIR HFA [Concomitant]
     Active Substance: ALBUTEROL SULFATE
     Indication: DYSPNOEA
     Dosage: 2 DF, AS REQ^D (EVERY 4-6 HOURS)
     Route: 055
     Dates: start: 20151228
  8. PROAIR HFA [Concomitant]
     Active Substance: ALBUTEROL SULFATE
     Indication: WHEEZING
  9. CLEOCIN T [Concomitant]
     Active Substance: CLINDAMYCIN PHOSPHATE
     Indication: ACNE
     Dosage: 1 %, AS REQ^D (TWO TIMES PER DAY)
     Route: 061
     Dates: start: 20160701
  10. LYRICA [Concomitant]
     Active Substance: PREGABALIN
     Indication: PRODUCT USED FOR UNKNOWN INDICATION
     Dosage: 100 MG, 2X/DAY:BID
     Route: 048
     Dates: start: 20160325
  11. ARTIFICIAL TEARS                   /00222401/ [Concomitant]
     Indication: PRODUCT USED FOR UNKNOWN INDICATION
     Dosage: UNK, AS REQ^D (EVERY 4 HOURS)
     Route: 047
     Dates: start: 20130926
  12. PROVENTIL [Concomitant]
     Active Substance: ALBUTEROL
     Indication: DYSPNOEA
     Dosage: 2 DF, AS REQ^D (EVERY 4-6 HOURS)
     Route: 055
     Dates: start: 20151228
  13. PROVENTIL [Concomitant]
     Active Substance: ALBUTEROL
     Indication: WHEEZING
  14. VENTOLIN [Concomitant]
     Active Substance: ALBUTEROL SULFATE
     Indication: COUGH
  15. EPIPEN [Concomitant]
     Active Substance: EPINEPHRINE
     Indication: ANAPHYLAXIS PROPHYLAXIS
     Dosage: UNK UNK, AS REQ^D
     Route: 065
     Dates: start: 20151228
  16. RITALIN [Concomitant]
     Active Substance: METHYLPHENIDATE HYDROCHLORIDE
     Indication: PRODUCT USED FOR UNKNOWN INDICATION
     Dosage: 2.5 MG (1/2 OF A 5 MG), 2X/DAY:BID (WITH BREAKFAST AND LUNCH)
     Route: 048
     Dates: start: 20160810
  17. ZYRTEC [Concomitant]
     Active Substance: CETIRIZINE HYDROCHLORIDE
     Indication: PRODUCT USED FOR UNKNOWN INDICATION
     Dosage: 5 MG, AS REQ^D (EVERY 4 HOURS)
     Route: 048
  18. PROAMATINE [Suspect]
     Active Substance: MIDODRINE HYDROCHLORIDE
     Dosage: 7.5 MG, 3X/DAY:TID
     Route: 048
  19. NORTHERA [Suspect]
     Active Substance: DROXIDOPA
     Indication: AUTONOMIC NERVOUS SYSTEM IMBALANCE
     Dosage: 500 MG (ONE 200 MG + ONE 300 MG CAPSULE), 3X/DAY:TID
     Route: 048
     Dates: start: 20160812
  20. VENTOLIN [Concomitant]
     Active Substance: ALBUTEROL SULFATE
     Indication: DYSPNOEA
     Dosage: 2 DF, AS REQ^D (EVERY 4-6 HOURS)
     Route: 055
     Dates: start: 20151228
  21. METAMUCIL ORANGE [Concomitant]
     Indication: PRODUCT USED FOR UNKNOWN INDICATION
     Dosage: UNKNOWN (1 TBSP), 1X/DAY:QD
     Route: 048
  22. ARISTOCORT                         /00031901/ [Concomitant]
     Indication: PRODUCT USED FOR UNKNOWN INDICATION
     Dosage: 0.1 %, AS REQ^D (2X/DAY)
     Route: 061
     Dates: start: 20151008
  23. PROAMATINE [Suspect]
     Active Substance: MIDODRINE HYDROCHLORIDE
     Dosage: UNK, UNKNOWN (TAPERING DOSE)
     Route: 048
  24. FLORINEF ACETATE [Concomitant]
     Active Substance: FLUDROCORTISONE ACETATE
     Indication: PRODUCT USED FOR UNKNOWN INDICATION
     Dosage: 0.1 MG, 2X/DAY:BID
     Route: 065
     Dates: start: 20160617
  25. VIACTIV CALCIUM PLUS VITAMIN D + K [Concomitant]
     Indication: PRODUCT USED FOR UNKNOWN INDICATION
     Dosage: 500-500-40 MG (TWO TABLETS), 1X/DAY:QD
     Route: 048
  26. PREVACID [Concomitant]
     Active Substance: LANSOPRAZOLE
     Indication: PRODUCT USED FOR UNKNOWN INDICATION
     Dosage: 30 MG, 1X/DAY:QD
     Route: 048
  27. NASACORT AQ [Concomitant]
     Active Substance: TRIAMCINOLONE ACETONIDE
     Indication: RHINITIS
     Dosage: 1-2 DF, AS REQ^D (DAILY)
     Route: 045
     Dates: start: 20140310
  28. PROAIR HFA [Concomitant]
     Active Substance: ALBUTEROL SULFATE
     Indication: COUGH
  29. ELESTAT [Concomitant]
     Active Substance: EPINASTINE HYDROCHLORIDE
     Indication: PRODUCT USED FOR UNKNOWN INDICATION
     Dosage: 1 GTT, 2X/DAY:BID
     Route: 047
  30. PROAMATINE [Suspect]
     Active Substance: MIDODRINE HYDROCHLORIDE
     Indication: PRODUCT USED FOR UNKNOWN INDICATION
     Dosage: 10 MG (TWO 5 MG TABLETS), 3X/DAY:TID
     Route: 048
     Dates: start: 20160505
  31. PROVENTIL [Concomitant]
     Active Substance: ALBUTEROL
     Indication: COUGH
  32. ENPRESSE-28 [Concomitant]
     Indication: PRODUCT USED FOR UNKNOWN INDICATION
     Dosage: 1 DF, 1X/DAY:QD
     Route: 048
     Dates: start: 20160415
  33. ZANTAC 75 [Concomitant]
     Active Substance: RANITIDINE HYDROCHLORIDE
     Indication: PRODUCT USED FOR UNKNOWN INDICATION
     Dosage: 75 MG, AS REQ^D (1X/DAY)
     Route: 048

REACTIONS (18)
  - Feeling abnormal [Unknown]
  - Diarrhoea [Recovered/Resolved]
  - Hypertension [Unknown]
  - Headache [Unknown]
  - Confusional state [Unknown]
  - Miliaria [Recovered/Resolved]
  - Peripheral coldness [Unknown]
  - Burning sensation [Recovered/Resolved]
  - Feeling cold [Unknown]
  - Menorrhagia [Unknown]
  - Temperature intolerance [Unknown]
  - Irregular breathing [Unknown]
  - Pallor [Unknown]
  - Affective disorder [Unknown]
  - Malaise [Unknown]
  - Dyskinesia [Unknown]
  - Nervousness [Unknown]
  - Rash [Recovered/Resolved]

NARRATIVE: CASE EVENT DATE: 201607
